FAERS Safety Report 7469089-X (Version None)
Quarter: 2011Q2

REPORT INFORMATION
  Report Type: 
  Country: None (occurrence: None)
  Receive Date: 20110505
  Receipt Date: 20110505
  Transmission Date: 20111010
  Serious: No
  Sender: FDA-Public Use
  Company Number: None

PATIENT
  Age: 53 Year
  Sex: Male
  Weight: 113.3993 kg

DRUGS (1)
  1. QUELICIN [Suspect]
     Indication: ELECTROCONVULSIVE THERAPY
     Dates: start: 20110504, end: 20110504

REACTIONS (1)
  - DRUG INEFFECTIVE [None]
